FAERS Safety Report 11349376 (Version 2)
Quarter: 2015Q3

REPORT INFORMATION
  Report Type: Spontaneous
  Country: CH (occurrence: CH)
  Receive Date: 20150807
  Receipt Date: 20150916
  Transmission Date: 20151125
  Serious: Yes (Other)
  Sender: FDA-Public Use
  Company Number: CH-ROCHE-1617035

PATIENT
  Age: 31 Year
  Sex: Male

DRUGS (2)
  1. CORTISONE [Concomitant]
     Active Substance: CORTISONE\HYDROCORTISONE
     Indication: POST PROCEDURAL COMPLICATION
     Dosage: LOCAL AND SYSTEMIC
     Route: 065
  2. ACTILYSE [Suspect]
     Active Substance: ALTEPLASE
     Indication: POST PROCEDURAL COMPLICATION
     Route: 031

REACTIONS (3)
  - Visual acuity reduced [Unknown]
  - Lens dislocation [Unknown]
  - Lenticular opacities [Unknown]
